FAERS Safety Report 4752776-1 (Version None)
Quarter: 2005Q3

REPORT INFORMATION
  Report Type: 
  Country: None (occurrence: None)
  Receive Date: 20050823
  Receipt Date: 20050810
  Transmission Date: 20060218
  Serious: Yes (Other)
  Sender: FDA-Public Use
  Company Number: 2005115133

PATIENT
  Age: 54 Year
  Sex: Male
  Weight: 75 kg

DRUGS (7)
  1. TOLTERODINE TARTRATE [Suspect]
     Indication: URINARY INCONTINENCE
     Dosage: 4 MG, ORAL
     Route: 048
     Dates: start: 20050504
  2. SINEMET [Suspect]
     Indication: PARKINSON'S DISEASE
     Dosage: ORAL
     Route: 048
     Dates: start: 20050614
  3. AMLODIPINE [Concomitant]
  4. CITALOPRAM (CITALOPRAM) [Concomitant]
  5. FOLIC ACID [Concomitant]
  6. ACETAMINOPHEN W/ CODEINE [Concomitant]
  7. VITAMINS (VITAMINS) [Concomitant]

REACTIONS (1)
  - URINARY RETENTION [None]
